FAERS Safety Report 22164928 (Version 1)
Quarter: 2023Q2

REPORT INFORMATION
  Report Type: Spontaneous
  Country: JP (occurrence: JP)
  Receive Date: 20230403
  Receipt Date: 20230403
  Transmission Date: 20230721
  Serious: Yes (Other)
  Sender: FDA-Public Use
  Company Number: JP-ORGANON-O2303JPN000450J

PATIENT
  Age: 85 Year
  Sex: Female

DRUGS (1)
  1. ALENDRONATE SODIUM [Suspect]
     Active Substance: ALENDRONATE SODIUM
     Dosage: UNK
     Route: 048
     Dates: start: 201505, end: 202203

REACTIONS (3)
  - Cellulitis [Unknown]
  - Osteomyelitis [Unknown]
  - Osteonecrosis of jaw [Unknown]
